FAERS Safety Report 9604397 (Version 1)
Quarter: 2013Q4

REPORT INFORMATION
  Report Type: Spontaneous
  Country: US (occurrence: US)
  Receive Date: 20131008
  Receipt Date: 20131008
  Transmission Date: 20140711
  Serious: No
  Sender: FDA-Public Use
  Company Number: US-GLAXOSMITHKLINE-A1040637A

PATIENT
  Age: 24 Year
  Sex: Female

DRUGS (4)
  1. POTIGA [Suspect]
     Indication: PARTIAL SEIZURES
     Dosage: 100MG THREE TIMES PER DAY
     Route: 048
     Dates: start: 201308, end: 201309
  2. DEPAKOTE [Concomitant]
  3. LAMICTAL [Concomitant]
  4. KLONOPIN [Concomitant]

REACTIONS (2)
  - Rash [Recovered/Resolved]
  - Hypersensitivity [Unknown]
